FAERS Safety Report 21764641 (Version 2)
Quarter: 2023Q1

REPORT INFORMATION
  Report Type: Spontaneous
  Country: IT (occurrence: IT)
  Receive Date: 20221222
  Receipt Date: 20230121
  Transmission Date: 20230418
  Serious: Yes (Hospitalization)
  Sender: FDA-Public Use
  Company Number: IT-AMGEN-ITASP2022217194

PATIENT
  Age: 48 Year
  Sex: Female
  Weight: 51 kg

DRUGS (2)
  1. PROLIA [Suspect]
     Active Substance: DENOSUMAB
     Indication: Osteoporosis
     Dosage: 60 MILLIGRAM, FIRST ADMINISTRATION 1 SUBCUTANEOUS VIAL
     Route: 058
     Dates: start: 20221025
  2. PREDNISONE [Concomitant]
     Active Substance: PREDNISONE
     Indication: Coeliac disease
     Dosage: 5 MILLIGRAM
     Route: 048
     Dates: start: 20221025

REACTIONS (3)
  - Hypophosphataemia [Recovering/Resolving]
  - Hyperparathyroidism [Recovering/Resolving]
  - Hyperparathyroidism primary [Recovered/Resolved]

NARRATIVE: CASE EVENT DATE: 20221122
